FAERS Safety Report 11642363 (Version 1)
Quarter: 2015Q4

REPORT INFORMATION
  Report Type: Spontaneous
  Country: US (occurrence: US)
  Receive Date: 20151019
  Receipt Date: 20151019
  Transmission Date: 20160304
  Serious: Yes (Other)
  Sender: FDA-Public Use
  Company Number: US-ASTRAZENECA-2015SE99363

PATIENT
  Sex: Male
  Weight: 120.2 kg

DRUGS (1)
  1. BYETTA [Suspect]
     Active Substance: EXENATIDE
     Indication: TYPE 2 DIABETES MELLITUS
     Dosage: 250 MCG / 1.2 ML UNKNOWN
     Route: 058
     Dates: start: 2010

REACTIONS (6)
  - Hypertension [Unknown]
  - Intentional product misuse [Unknown]
  - Cardiac failure congestive [Unknown]
  - Blood glucose fluctuation [Unknown]
  - Product quality issue [Unknown]
  - Incorrect dose administered by device [Unknown]
